FAERS Safety Report 19362863 (Version 1)
Quarter: 2021Q2

REPORT INFORMATION
  Report Type: Spontaneous
  Country: IT (occurrence: IT)
  Receive Date: 20210602
  Receipt Date: 20210602
  Transmission Date: 20210717
  Serious: Yes (Other)
  Sender: FDA-Public Use
  Company Number: IT-TEVA-2021-IT-1917398

PATIENT
  Age: 15 Year
  Sex: Female

DRUGS (7)
  1. VINCRISTINE [Suspect]
     Active Substance: VINCRISTINE
     Indication: BONE SARCOMA
  2. VINCRISTINE [Suspect]
     Active Substance: VINCRISTINE
     Indication: SOFT TISSUE SARCOMA
     Dosage: ON DAYS 1 AND 8 OF EACH CYCLE
     Route: 042
  3. IRINOTECAN [Suspect]
     Active Substance: IRINOTECAN
     Indication: BONE SARCOMA
  4. PAZOPANIB [Suspect]
     Active Substance: PAZOPANIB
     Indication: SOFT TISSUE SARCOMA
     Dosage: ONCE DAILY (MAXIMUM 600 MG/DAY) PER 21 DAYS OF EACH CYCLE; PAZOPANIB WAS GIVEN WITH CLEAR LIQUIDS...
     Route: 048
  5. IRINOTECAN [Suspect]
     Active Substance: IRINOTECAN
     Indication: SOFT TISSUE SARCOMA
     Dosage: 50 MG/M2/DAY FOR 5 DAYS
     Route: 042
  6. CEFIXIME. [Concomitant]
     Active Substance: CEFIXIME
     Indication: PROPHYLAXIS
     Dosage: (MAXIMUM 400 MG/DAY) DURING THE FIRST WEEK OF EACH CYCLE
     Route: 048
  7. PAZOPANIB [Suspect]
     Active Substance: PAZOPANIB
     Indication: BONE SARCOMA

REACTIONS (2)
  - Off label use [Unknown]
  - Neutropenia [Unknown]
